FAERS Safety Report 22861351 (Version 6)
Quarter: 2024Q1

REPORT INFORMATION
  Report Type: Spontaneous
  Country: US (occurrence: US)
  Receive Date: 20230824
  Receipt Date: 20240105
  Transmission Date: 20240410
  Serious: No
  Sender: FDA-Public Use
  Company Number: US-PFIZER INC-PV202300137753

PATIENT
  Age: 78 Year
  Sex: Male

DRUGS (3)
  1. RETACRIT [Suspect]
     Active Substance: EPOETIN ALFA-EPBX
     Indication: Nephrogenic anaemia
     Dosage: 40,000 UNITS (4ML) SQ INJECTION EVERY 2 WEEKS PRN HGB LESS THEN 10.5
     Route: 058
  2. RETACRIT [Suspect]
     Active Substance: EPOETIN ALFA-EPBX
     Indication: Anaemia
     Dosage: 40000 IU/ML
  3. RETACRIT [Suspect]
     Active Substance: EPOETIN ALFA-EPBX
     Indication: Anaemia of chronic disease
     Dosage: 40000 IU, AS NEEDED (INJECT SUBCUTANEOUSLY 40,000 UNITS EVERY 2 WEEKS FOR HGB LESS THAN 11.0)
     Route: 058

REACTIONS (4)
  - Full blood count decreased [Unknown]
  - Hypoacusis [Unknown]
  - Off label use [Unknown]
  - Product dose omission issue [Unknown]
